FAERS Safety Report 19715539 (Version 6)
Quarter: 2022Q1

REPORT INFORMATION
  Report Type: Report from Study
  Country: CN (occurrence: CN)
  Receive Date: 20210818
  Receipt Date: 20220216
  Transmission Date: 20220423
  Serious: Yes (Hospitalization, Other)
  Sender: FDA-Public Use
  Company Number: NVSC2021CN181842

PATIENT
  Age: 71 Year
  Sex: Female
  Weight: 50 kg

DRUGS (2)
  1. ZYKADIA [Suspect]
     Active Substance: CERITINIB
     Indication: Metastases to central nervous system
     Dosage: 450 MG, QD
     Route: 048
     Dates: start: 20190214
  2. ZYKADIA [Suspect]
     Active Substance: CERITINIB
     Indication: Lung neoplasm malignant

REACTIONS (17)
  - Fall [Not Recovered/Not Resolved]
  - Abdominal injury [Not Recovered/Not Resolved]
  - Gait disturbance [Unknown]
  - Cerebral infarction [Not Recovered/Not Resolved]
  - Asthenia [Not Recovered/Not Resolved]
  - Cerebral atrophy [Unknown]
  - Demyelination [Unknown]
  - Brain herniation [Unknown]
  - Protein total decreased [Unknown]
  - Blood albumin decreased [Unknown]
  - Blood alkaline phosphatase increased [Unknown]
  - Gamma-glutamyltransferase increased [Unknown]
  - Low density lipoprotein increased [Unknown]
  - Blood chloride decreased [Unknown]
  - Oedema peripheral [Unknown]
  - Aortic valve calcification [Unknown]
  - Thyroid calcification [Unknown]

NARRATIVE: CASE EVENT DATE: 20190919
